FAERS Safety Report 16463821 (Version 2)
Quarter: 2019Q3

REPORT INFORMATION
  Report Type: Report from Study
  Country: US (occurrence: US)
  Receive Date: 20190621
  Receipt Date: 20190725
  Transmission Date: 20191004
  Serious: Yes (Death)
  Sender: FDA-Public Use
  Company Number: US-BAYER-2019-074444

PATIENT
  Age: 40 Year
  Sex: Female

DRUGS (9)
  1. CEFDINIR. [Concomitant]
     Active Substance: CEFDINIR
  2. TIZANIDINE. [Concomitant]
     Active Substance: TIZANIDINE
     Dosage: UNK
  3. MONTELUKAST SODIUM. [Concomitant]
     Active Substance: MONTELUKAST SODIUM
  4. BETASERON [Suspect]
     Active Substance: INTERFERON BETA-1B
     Indication: MULTIPLE SCLEROSIS
     Dosage: 0.25 MG, QOD
     Route: 058
     Dates: start: 20130924
  5. BETASERON [Suspect]
     Active Substance: INTERFERON BETA-1B
     Indication: RELAPSING-REMITTING MULTIPLE SCLEROSIS
     Dosage: 8 MIU, QOD
     Route: 058
     Dates: start: 20120301
  6. BETASERON [Suspect]
     Active Substance: INTERFERON BETA-1B
     Indication: RELAPSING-REMITTING MULTIPLE SCLEROSIS
     Dosage: 0.25 MG, QOD
     Dates: start: 20130924
  7. SINUS [AMOXICILLIN TRIHYDRATE;BENZYDAMINE HYDROCHLORIDE;BROMHEXINE [Concomitant]
     Dosage: UNK
  8. MAGNESIUM OXIDE. [Concomitant]
     Active Substance: MAGNESIUM OXIDE
  9. INFLUENZA VACCINE [Concomitant]
     Active Substance: INFLUENZA VIRUS VACCINE

REACTIONS (5)
  - Death [Fatal]
  - Product dose omission [None]
  - Product dose omission [Not Recovered/Not Resolved]
  - Product dose omission [Recovered/Resolved]
  - Product dose omission [None]

NARRATIVE: CASE EVENT DATE: 20190617
